FAERS Safety Report 9057461 (Version 1)
Quarter: 2013Q1

REPORT INFORMATION
  Report Type: Spontaneous
  Country: US (occurrence: US)
  Receive Date: 20130204
  Receipt Date: 20130204
  Transmission Date: 20140127
  Serious: No
  Sender: FDA-Public Use
  Company Number: US-009507513-1301USA010194

PATIENT
  Sex: Female

DRUGS (4)
  1. MIRALAX [Suspect]
     Indication: BOWEL MOVEMENT IRREGULARITY
     Dosage: 17 G, QD
     Route: 048
  2. CARDIZEM [Concomitant]
     Indication: CARDIAC DISORDER
     Dosage: UNK, UNKNOWN
  3. RED YEAST [Concomitant]
     Indication: BLOOD CHOLESTEROL INCREASED
     Dosage: UNK, UNKNOWN
  4. HYDROCHLOROTHIAZIDE [Concomitant]
     Indication: HYPERTENSION
     Dosage: UNK, UNKNOWN

REACTIONS (2)
  - Abdominal pain upper [Recovered/Resolved]
  - Dyspepsia [Recovered/Resolved]
